FAERS Safety Report 25347649 (Version 1)
Quarter: 2025Q2

REPORT INFORMATION
  Report Type: Spontaneous
  Country: US (occurrence: None)
  Receive Date: 20250522
  Receipt Date: 20250522
  Transmission Date: 20250717
  Serious: Yes (Hospitalization, Disabling, Other)
  Sender: FDA-CTU
  Company Number: None

PATIENT
  Age: 47 Year
  Sex: Male
  Weight: 81 kg

DRUGS (5)
  1. CIPROFLOXACIN [Suspect]
     Active Substance: CIPROFLOXACIN
     Indication: Prostatitis
     Dosage: OTHER QUANTITY : 1 TABLET(S);?FREQUENCY : TWICE A DAY;?
     Dates: start: 20240830, end: 20240924
  2. IBUPROFEN [Concomitant]
     Active Substance: IBUPROFEN
  3. DOXYCYCLINE [Concomitant]
     Active Substance: DOXYCYCLINE
  4. METRONIDAZOLE [Concomitant]
     Active Substance: METRONIDAZOLE
  5. FLUCONAZOLE [Concomitant]
     Active Substance: FLUCONAZOLE

REACTIONS (16)
  - Insomnia [None]
  - Anxiety [None]
  - Depression [None]
  - Cold sweat [None]
  - Dyspnoea [None]
  - Fatigue [None]
  - Headache [None]
  - Paraesthesia [None]
  - Hypoaesthesia [None]
  - Nausea [None]
  - Decreased appetite [None]
  - Fatigue [None]
  - Vitamin D decreased [None]
  - Blood folate abnormal [None]
  - Serum ferritin increased [None]
  - White blood cell count abnormal [None]

NARRATIVE: CASE EVENT DATE: 20240920
